FAERS Safety Report 23325830 (Version 1)
Quarter: 2023Q4

REPORT INFORMATION
  Report Type: Report from Study
  Country: US (occurrence: US)
  Receive Date: 20231221
  Receipt Date: 20231221
  Transmission Date: 20240110
  Serious: Yes (Life-Threatening, Other)
  Sender: FDA-Public Use
  Company Number: US-BEH-2023165887

PATIENT
  Age: 52 Year
  Sex: Female
  Weight: 91.61 kg

DRUGS (3)
  1. BERINERT [Suspect]
     Active Substance: HUMAN C1-ESTERASE INHIBITOR
     Indication: Hereditary angioedema
     Dosage: 6000 INTERNATIONAL UNIT/KILOGRAM, BIW
     Route: 058
  2. BERINERT [Suspect]
     Active Substance: HUMAN C1-ESTERASE INHIBITOR
     Indication: Prophylaxis
     Dosage: 6000 INTERNATIONAL UNIT
     Route: 058
     Dates: start: 20231116
  3. BERINERT [Suspect]
     Active Substance: HUMAN C1-ESTERASE INHIBITOR
     Dosage: UNK
     Route: 058
     Dates: start: 202311

REACTIONS (12)
  - Nausea [Unknown]
  - Hereditary angioedema [Recovered/Resolved]
  - Nausea [Unknown]
  - Brain fog [Unknown]
  - Fatigue [Unknown]
  - Stress [Unknown]
  - Hereditary angioedema [Unknown]
  - Hereditary angioedema [Unknown]
  - Hereditary angioedema [Unknown]
  - Euphoric mood [Unknown]
  - Brain fog [Unknown]
  - Mental impairment [Unknown]

NARRATIVE: CASE EVENT DATE: 20231124
